FAERS Safety Report 5661356-5 (Version None)
Quarter: 2008Q1

REPORT INFORMATION
  Report Type: 
  Country: None (occurrence: None)
  Receive Date: 20080312
  Receipt Date: 20080303
  Transmission Date: 20080703
  Serious: Yes (Hospitalization)
  Sender: FDA-Public Use
  Company Number: AU-AVENTIS-200810974EU

PATIENT
  Age: 60 Year
  Sex: Female

DRUGS (1)
  1. RILUTEK [Suspect]
     Route: 048
     Dates: start: 20071027

REACTIONS (3)
  - FALL [None]
  - INFECTION [None]
  - MUSCLE SPASMS [None]
